FAERS Safety Report 7370176-5 (Version None)
Quarter: 2011Q1

REPORT INFORMATION
  Report Type: 
  Country: None (occurrence: None)
  Receive Date: 20110323
  Receipt Date: 20100726
  Transmission Date: 20110831
  Serious: No
  Sender: FDA-Public Use
  Company Number: US-ASTRAZENECA-2010SE34880

PATIENT
  Sex: Female

DRUGS (3)
  1. VITAMIN D [Suspect]
  2. LISINOPRIL [Suspect]
     Route: 048
  3. CALCIUM [Suspect]

REACTIONS (4)
  - HYPERTENSION [None]
  - TRISMUS [None]
  - CEREBRAL DISORDER [None]
  - GASTRIC DISORDER [None]
